FAERS Safety Report 9837414 (Version 1)
Quarter: 2013Q4

REPORT INFORMATION
  Report Type: Spontaneous
  Country: US (occurrence: None)
  Receive Date: 20131121
  Receipt Date: 20131121
  Transmission Date: 20140711
  Serious: No
  Sender: FDA-Public Use
  Company Number: 1000050332

PATIENT
  Age: 88 Year
  Sex: Male

DRUGS (13)
  1. TUDORZA PRESSAIR (ACLIDINIUM BROMIDE) (400 MICROGRAM, POWDER) [Suspect]
     Indication: CHRONIC OBSTRUCTIVE PULMONARY DISEASE
     Route: 055
     Dates: start: 20131017
  2. SYMBICORT [Concomitant]
  3. WARFARIN (WARFARIN) [Concomitant]
  4. FUROSEMIDE (FUROSEMIDE) [Concomitant]
  5. CARVEDILOL (CARVEDILOL) [Concomitant]
  6. CRESTOR (ROSUVASTATIN CALCIUM) [Concomitant]
  7. ASPIRIN (ACETYLSALICYLIC ACID) [Concomitant]
  8. PEPCID (FAMOTIDINE) [Concomitant]
  9. POTASSIUM (POTASSIUM) [Concomitant]
  10. MAGNESIUM (MAGNESIUM) [Concomitant]
  11. MVI (VITAMINS NOS) [Concomitant]
  12. VITAMIN D3 (COLECALCIFEROL) [Concomitant]
  13. HERB A-LAX (HERB-A-LAX) [Concomitant]

REACTIONS (3)
  - Accidental overdose [None]
  - Medication error [None]
  - Cough [None]
